FAERS Safety Report 9183364 (Version 1)
Quarter: 2013Q1

REPORT INFORMATION
  Report Type: Spontaneous
  Country: US (occurrence: US)
  Receive Date: 20130322
  Receipt Date: 20130322
  Transmission Date: 20140127
  Serious: No
  Sender: FDA-Public Use
  Company Number: US-009507513-1303USA011110

PATIENT
  Age: 42 Year
  Sex: Female

DRUGS (2)
  1. SAPHRIS [Suspect]
     Dosage: 10 MG, QPM
  2. LITHIUM [Concomitant]

REACTIONS (1)
  - Dyskinesia [Unknown]
